FAERS Safety Report 24414709 (Version 1)
Quarter: 2024Q4

REPORT INFORMATION
  Report Type: Spontaneous
  Country: US (occurrence: US)
  Receive Date: 20241009
  Receipt Date: 20241009
  Transmission Date: 20250115
  Serious: Yes (Hospitalization, Other)
  Sender: ENDO
  Company Number: US-ENDO USA, INC.-2024-003536

PATIENT
  Age: 72 Year
  Sex: Male

DRUGS (3)
  1. ADRENALIN [Suspect]
     Active Substance: EPINEPHRINE
     Indication: Hypotension
     Dosage: UNK UNKNOWN, UNKNOWN
     Route: 065
  2. NOREPINEPHRINE [Suspect]
     Active Substance: NOREPINEPHRINE\NOREPINEPHRINE BITARTRATE
     Indication: Hypotension
     Dosage: UNK UNKNOWN, UNKNOWN
     Route: 065
  3. TENECTEPLASE [Concomitant]
     Active Substance: TENECTEPLASE
     Indication: Pulmonary embolism
     Dosage: UNK UNKNOWN, UNKNOWN
     Route: 065

REACTIONS (2)
  - Shock [Recovered/Resolved]
  - Left ventricle outflow tract obstruction [Recovered/Resolved]
